FAERS Safety Report 6748647-1 (Version None)
Quarter: 2010Q2

REPORT INFORMATION
  Report Type: 
  Country: None (occurrence: None)
  Receive Date: 20100601
  Receipt Date: 20100519
  Transmission Date: 20101027
  Serious: Yes (Death, Hospitalization)
  Sender: FDA-Public Use
  Company Number: CA-SOLVAY-00210003400

PATIENT
  Age: 76 Year
  Sex: Female

DRUGS (2)
  1. ESTROGEN [Suspect]
     Indication: DRUG USE FOR UNKNOWN INDICATION
     Dosage: DAILY DOSE:  UNKNOWN
     Route: 065
     Dates: start: 20010101, end: 20010101
  2. PROGESTERONE [Suspect]
     Indication: DRUG USE FOR UNKNOWN INDICATION
     Dosage: DAILY DOSE:  UNKNOWN
     Route: 065
     Dates: start: 20010101, end: 20010101

REACTIONS (2)
  - DEEP VEIN THROMBOSIS [None]
  - OESOPHAGEAL ADENOCARCINOMA [None]
